FAERS Safety Report 14481260 (Version 1)
Quarter: 2018Q1

REPORT INFORMATION
  Report Type: Other
  Country: FI (occurrence: FI)
  Receive Date: 20180202
  Receipt Date: 20180202
  Transmission Date: 20180509
  Serious: Yes (Hospitalization, Other)
  Sender: FDA-Public Use
  Company Number: FI-GLENMARK PHARMACEUTICALS-2017GMK031616

PATIENT

DRUGS (3)
  1. PANACOD [Interacting]
     Active Substance: ACETAMINOPHEN\CODEINE PHOSPHATE
     Indication: BACK PAIN
     Dosage: (1)
     Route: 065
     Dates: start: 2017
  2. LITHIUM. [Suspect]
     Active Substance: LITHIUM
     Indication: PRODUCT USED FOR UNKNOWN INDICATION
     Dosage: 1050 MG, UNK
     Route: 065
  3. OLANZAPINE GLENMARK 7.5 MG TABLETS [Suspect]
     Active Substance: OLANZAPINE
     Indication: BIPOLAR I DISORDER
     Dosage: 15 MG, UNK (AT NIGHT)
     Route: 065

REACTIONS (6)
  - Drug interaction [Unknown]
  - Weight increased [Unknown]
  - Intervertebral disc protrusion [Unknown]
  - Increased appetite [Unknown]
  - Intercepted drug prescribing error [Unknown]
  - Mania [Recovered/Resolved]

NARRATIVE: CASE EVENT DATE: 201705
